FAERS Safety Report 7183687-2 (Version None)
Quarter: 2010Q4

REPORT INFORMATION
  Report Type: 
  Country: None (occurrence: None)
  Receive Date: 20101222
  Receipt Date: 20101216
  Transmission Date: 20110411
  Serious: Yes (Other)
  Sender: FDA-Public Use
  Company Number: CA-ABBOTT-10P-028-0687898-00

PATIENT
  Sex: Female
  Weight: 52.664 kg

DRUGS (1)
  1. HUMIRA [Suspect]
     Indication: RHEUMATOID ARTHRITIS
     Route: 058
     Dates: start: 20080722, end: 20101017

REACTIONS (8)
  - ABDOMINAL PAIN [None]
  - ABORTION SPONTANEOUS [None]
  - FATIGUE [None]
  - GENERALISED OEDEMA [None]
  - OSTEONECROSIS OF JAW [None]
  - PAIN [None]
  - RASH GENERALISED [None]
  - RHEUMATOID ARTHRITIS [None]
